FAERS Safety Report 4897161-7 (Version None)
Quarter: 2006Q1

REPORT INFORMATION
  Report Type: 
  Country: None (occurrence: None)
  Receive Date: 20060131
  Receipt Date: 20060124
  Transmission Date: 20060701
  Serious: Yes (Hospitalization)
  Sender: FDA-Public Use
  Company Number: NO-MERCK-0601NOR00025

PATIENT
  Age: 54 Year
  Sex: Female

DRUGS (6)
  1. VIOXX [Suspect]
     Indication: RHEUMATOID ARTHRITIS
     Route: 048
     Dates: start: 20030101, end: 20040101
  2. ALENDRONATE SODIUM [Concomitant]
     Route: 048
     Dates: start: 19990101
  3. CALCIUM CARBONATE AND CHOLECALCIFEROL [Concomitant]
     Route: 065
  4. ENALAPRILAT [Concomitant]
     Indication: HYPERTENSION
     Route: 065
  5. PREDNISOLONE [Concomitant]
     Indication: RHEUMATOID ARTHRITIS
     Route: 065
  6. ETORICOXIB [Concomitant]
     Indication: RHEUMATOID ARTHRITIS
     Route: 065
     Dates: start: 20041015

REACTIONS (1)
  - MYOCARDIAL INFARCTION [None]
